FAERS Safety Report 4276958-0 (Version None)
Quarter: 2004Q1

REPORT INFORMATION
  Report Type: 
  Country: None (occurrence: None)
  Receive Date: 20040120
  Receipt Date: 20040112
  Transmission Date: 20041129
  Serious: Yes (Other)
  Sender: FDA-Public Use
  Company Number: US-JNJFOC-20030901792

PATIENT
  Age: 39 Year
  Sex: Male
  Weight: 91.173 kg

DRUGS (4)
  1. REMICADE [Suspect]
     Indication: CROHN'S DISEASE
     Dosage: 500 MG, INTRAVENOUS
     Route: 042
     Dates: start: 20030729
  2. REMICADE [Suspect]
     Indication: CROHN'S DISEASE
     Dosage: 500 MG, INTRAVENOUS
     Route: 042
     Dates: start: 20030814
  3. PREDNISONE [Concomitant]
  4. 6-MP (MERCAPTOPURINE) TABLETS [Concomitant]

REACTIONS (3)
  - PENIS DISORDER [None]
  - PROSTATITIS [None]
  - SCROTAL ERYTHEMA [None]
